FAERS Safety Report 8593814 (Version 2)
Quarter: 2012Q4

REPORT INFORMATION
  Report Type: 
  Country: IE (occurrence: IE)
  Receive Date: 20120604
  Receipt Date: 20120924
  Transmission Date: 20130627
  Serious: Yes (Other)
  Sender: FDA-Public Use
  Company Number: PHFR2012IE000579

PATIENT
  Age: 13 Year
  Sex: Male

DRUGS (2)
  1. CLOZARIL [Suspect]
     Indication: SCHIZOPHRENIA
     Dosage: 87.5 mg, BID
     Route: 048
     Dates: start: 20111225, end: 20120223
  2. CLOZARIL [Suspect]
     Route: 048
     Dates: end: 20120312

REACTIONS (10)
  - Tonsillitis [Unknown]
  - Red blood cell count decreased [Unknown]
  - Haematocrit decreased [Unknown]
  - Sedation [Unknown]
  - Somnolence [Unknown]
  - Neutropenia [Recovered/Resolved]
  - Haemoglobin decreased [Unknown]
  - Neutrophil count increased [Recovered/Resolved]
  - White blood cell count increased [Recovered/Resolved]
  - Off label use [None]
